FAERS Safety Report 9442296 (Version 1)
Quarter: 2013Q3

REPORT INFORMATION
  Report Type: Spontaneous
  Country: US (occurrence: US)
  Receive Date: 20130806
  Receipt Date: 20130806
  Transmission Date: 20140515
  Serious: No
  Sender: FDA-Public Use
  Company Number: US-GLAXOSMITHKLINE-A0995290A

PATIENT
  Age: 64 Year
  Sex: Female
  Weight: 66.4 kg

DRUGS (10)
  1. ADVAIR [Suspect]
     Indication: ASTHMA
     Dosage: 1PUFF TWICE PER DAY
     Route: 055
     Dates: start: 201209
  2. ADVAIR [Suspect]
     Indication: ASTHMA
     Route: 055
  3. ADVAIR [Suspect]
  4. VENTOLIN [Concomitant]
  5. LEXAPRO [Concomitant]
  6. CLONAZEPAM [Concomitant]
  7. SIMVASTATIN [Concomitant]
  8. FLUTICASONE PROPIONATE [Concomitant]
  9. VITAMIN D3 [Concomitant]
  10. ALLERGY SHOTS [Concomitant]

REACTIONS (3)
  - Headache [Unknown]
  - Cough [Unknown]
  - Drug ineffective [Unknown]
